FAERS Safety Report 16447316 (Version 1)
Quarter: 2019Q2

REPORT INFORMATION
  Report Type: Report from Study
  Country: None (occurrence: US)
  Receive Date: 20190618
  Receipt Date: 20190618
  Transmission Date: 20190711
  Serious: Yes (Hospitalization, Other)
  Sender: FDA-Public Use
  Company Number: US-ABBVIE-19K-163-2774742-00

PATIENT
  Age: 77 Year
  Sex: Female
  Weight: 59.47 kg

DRUGS (7)
  1. LEUCOVORIN. [Concomitant]
     Active Substance: LEUCOVORIN
     Indication: MINERAL SUPPLEMENTATION
  2. PREDNISOLONE. [Concomitant]
     Active Substance: PREDNISOLONE
     Indication: PRODUCT USED FOR UNKNOWN INDICATION
  3. HUMIRA [Suspect]
     Active Substance: ADALIMUMAB
     Indication: RHEUMATOID ARTHRITIS
     Dosage: FREQUENCY: 8 SYRINGE DAYS: 80
     Route: 058
     Dates: start: 2004, end: 20190331
  4. METHOTREXATE. [Concomitant]
     Active Substance: METHOTREXATE
     Indication: RHEUMATOID ARTHRITIS
  5. HUMIRA [Suspect]
     Active Substance: ADALIMUMAB
     Route: 058
     Dates: start: 20190513
  6. MELOXICAM. [Concomitant]
     Active Substance: MELOXICAM
     Indication: RHEUMATOID ARTHRITIS
  7. MELOXICAM. [Concomitant]
     Active Substance: MELOXICAM
     Indication: FIBROMYALGIA

REACTIONS (10)
  - Post procedural complication [Recovered/Resolved]
  - Cataract [Recovered/Resolved]
  - Scar [Unknown]
  - Retinal tear [Not Recovered/Not Resolved]
  - Postoperative adhesion [Not Recovered/Not Resolved]
  - Vitreous floaters [Not Recovered/Not Resolved]
  - Cataract [Recovered/Resolved]
  - Photopsia [Not Recovered/Not Resolved]
  - Intraocular pressure increased [Recovered/Resolved]
  - Floppy iris syndrome [Recovered/Resolved]

NARRATIVE: CASE EVENT DATE: 2004
